FAERS Safety Report 9805706 (Version 1)
Quarter: 2014Q1

REPORT INFORMATION
  Report Type: Spontaneous
  Country: CA (occurrence: CA)
  Receive Date: 20140109
  Receipt Date: 20140109
  Transmission Date: 20141002
  Serious: Yes (Hospitalization, Other)
  Sender: FDA-Public Use
  Company Number: PHHY2013CA154680

PATIENT
  Age: 67 Year
  Sex: Female

DRUGS (23)
  1. TASIGNA [Suspect]
     Indication: CHRONIC MYELOID LEUKAEMIA
     Dosage: 400 MG, BID
     Route: 048
     Dates: start: 20110820, end: 20110822
  2. EZETIMIBE [Suspect]
     Dosage: 10 MG, DAILY
  3. METFORMIN [Concomitant]
     Dosage: 500 MG, QID
  4. GLICLAZIDE [Concomitant]
  5. SALBUTAMOL [Concomitant]
     Route: 055
  6. ADVAIR [Concomitant]
     Route: 055
  7. DILTIAZEM [Concomitant]
     Dosage: 180 MG, DAILY
  8. TELMISARTAN [Concomitant]
     Dosage: 80 MG, DAILY
  9. HYDROXYZINE [Concomitant]
     Dosage: 25 MG, AT BED TIME
  10. CLONAZEPAM [Concomitant]
     Dosage: 0.5 MG, AT BEDTIME
  11. LANSOPRAZOLE [Concomitant]
     Dosage: 30 MG, DAILY
  12. APO-FOLIC ACID [Concomitant]
     Dosage: 5 MG, DAILY
  13. OXYCOCET [Concomitant]
  14. ASA [Concomitant]
     Dosage: 81 MG, DAILY
  15. ACETAMINOPHEN [Concomitant]
     Dosage: 1300 MG, AT SUPPER
  16. VITAMIN B [Concomitant]
  17. MULTI-VIT [Concomitant]
  18. CRANBERRY//VACCINIUM MACROCARPON [Concomitant]
     Dosage: 50 MG
  19. GRAPE SEED [Concomitant]
     Dosage: 100 MG
  20. HAAS-MAGNESIUM [Concomitant]
     Dosage: 250 MG
  21. SWISSE ULTIBOOST VITAMIN D [Concomitant]
     Dosage: 1000 U, DAILY
  22. GLUCOSAMINE + CHONDROITIN          /01430901/ [Concomitant]
     Dosage: 2 DF, BID
  23. OMEGA 3 [Concomitant]
     Dosage: 2 DF, BID

REACTIONS (9)
  - Pancreatitis [Recovered/Resolved]
  - Lipase increased [Recovered/Resolved]
  - Abdominal pain upper [Recovered/Resolved]
  - Vomiting [Recovered/Resolved]
  - Blood alkaline phosphatase increased [Recovered/Resolved]
  - Alanine aminotransferase increased [Recovered/Resolved]
  - Blood bilirubin increased [Recovered/Resolved]
  - Hypokalaemia [Unknown]
  - Sleep apnoea syndrome [Unknown]
